FAERS Safety Report 12470975 (Version 1)
Quarter: 2016Q2

REPORT INFORMATION
  Report Type: Spontaneous
  Country: US (occurrence: None)
  Receive Date: 20160615
  Receipt Date: 20160615
  Transmission Date: 20160815
  Serious: No
  Sender: FDA-Public Use
  Company Number: None

PATIENT
  Age: 64 Year
  Sex: Female

DRUGS (9)
  1. ZOLPIDEM [Concomitant]
     Active Substance: ZOLPIDEM\ZOLPIDEM TARTRATE
  2. ESTRADIOL. [Concomitant]
     Active Substance: ESTRADIOL
  3. LIDOCAINE. [Concomitant]
     Active Substance: LIDOCAINE
  4. ENBREL [Suspect]
     Active Substance: ETANERCEPT
     Indication: RHEUMATOID ARTHRITIS
     Dosage: 25MG/0.5ML 2X WEEKLY SQ
     Route: 058
     Dates: start: 20120530
  5. SKELAXIN [Concomitant]
     Active Substance: METAXALONE
  6. PRAVASTAT [Concomitant]
  7. BCOMPLEX [Concomitant]
  8. CYMBALTA [Concomitant]
     Active Substance: DULOXETINE HYDROCHLORIDE
  9. CELEBREX [Concomitant]
     Active Substance: CELECOXIB

REACTIONS (1)
  - Osteoporosis [None]
